FAERS Safety Report 5869556-6 (Version None)
Quarter: 2008Q3

REPORT INFORMATION
  Report Type: 
  Country: None (occurrence: None)
  Receive Date: 20080902
  Receipt Date: 20080815
  Transmission Date: 20090109
  Serious: Yes (Other)
  Sender: FDA-Public Use
  Company Number: 8036170

PATIENT
  Age: 60 Year
  Sex: Female
  Weight: 68 kg

DRUGS (7)
  1. XYZAL [Suspect]
     Indication: COUGH
  2. XYZAL [Suspect]
     Indication: HYPERSENSITIVITY
  3. LANTUS [Suspect]
     Indication: TYPE 2 DIABETES MELLITUS
     Dosage: 38 IU/D; SC
     Route: 058
  4. LANTUS [Suspect]
     Indication: TYPE 2 DIABETES MELLITUS
     Dosage: 24 IU/D; SC
     Route: 058
  5. GLIMEPIRIDE [Suspect]
  6. HORMONE REPLACEMENT [Concomitant]
  7. LEXAPRO [Concomitant]

REACTIONS (4)
  - BLOOD GLUCOSE INCREASED [None]
  - DRUG INEFFECTIVE [None]
  - HYPOPHAGIA [None]
  - SHOCK HYPOGLYCAEMIC [None]
